FAERS Safety Report 6526050-7 (Version None)
Quarter: 2010Q1

REPORT INFORMATION
  Report Type: 
  Country: None (occurrence: None)
  Receive Date: 20100104
  Receipt Date: 20091221
  Transmission Date: 20100710
  Serious: Yes (Hospitalization)
  Sender: FDA-Public Use
  Company Number: DE-MYLANLABS-2009S1021700

PATIENT
  Age: 29 Year

DRUGS (4)
  1. ELONTRIL [Interacting]
     Indication: DEPRESSION
  2. IMAP [Interacting]
     Indication: DEPRESSION
     Dosage: 2ML OF FLUSPIRILENE (=4MG) ONCE WEEKLY
     Route: 030
  3. AMITRIPTYLINE [Suspect]
     Indication: DEPRESSION
  4. ANDROCUR [Concomitant]

REACTIONS (2)
  - DRUG INTERACTION [None]
  - GRAND MAL CONVULSION [None]
